FAERS Safety Report 16188936 (Version 1)
Quarter: 2019Q2

REPORT INFORMATION
  Report Type: Spontaneous
  Country: US (occurrence: US)
  Receive Date: 20190411
  Receipt Date: 20190411
  Transmission Date: 20190711
  Serious: Yes (Death)
  Sender: FDA-Public Use
  Company Number: None

PATIENT
  Age: 79 Year
  Sex: Male
  Weight: 56.7 kg

DRUGS (16)
  1. VITAMIN B COMPLEX [Concomitant]
     Active Substance: CYANOCOBALAMIN\DEXPANTHENOL\NIACINAMIDE\PYRIDOXINE HYDROCHLORIDE\RIBOFLAVIN 5^-PHOSPHATE SODIUM\THIAMINE HYDROCHLORIDE\VITAMIN B COMPLEX
  2. VITAMIN C [Concomitant]
     Active Substance: ASCORBIC ACID
  3. CETIRIZINE [Concomitant]
     Active Substance: CETIRIZINE HYDROCHLORIDE
  4. DULOXETINE. [Concomitant]
     Active Substance: DULOXETINE
  5. GLUCERNA ADVANCE SHAKE [Concomitant]
  6. HUMALOG [Concomitant]
     Active Substance: INSULIN LISPRO
  7. ACETAMINOPHEN ES [Concomitant]
  8. HYDROXYZINE [Concomitant]
     Active Substance: HYDROXYZINE HYDROCHLORIDE
  9. ACETAMINOPHEN-CODEINE #3 [Concomitant]
     Active Substance: ACETAMINOPHEN\CODEINE PHOSPHATE
  10. ESCITALOPRAM [Concomitant]
     Active Substance: ESCITALOPRAM OXALATE
  11. ABIRATERONE. [Suspect]
     Active Substance: ABIRATERONE ACETATE
     Indication: PROSTATE CANCER
     Route: 048
     Dates: start: 20181113, end: 20190411
  12. ESOMEPRAZOLE. [Concomitant]
     Active Substance: ESOMEPRAZOLE MAGNESIUM
  13. BICALUTAMIDE. [Concomitant]
     Active Substance: BICALUTAMIDE
  14. ACETONE [Concomitant]
     Active Substance: ACETONE
  15. MULTIVITAMIN [Concomitant]
     Active Substance: VITAMINS
  16. LEVOTHYROXINE. [Concomitant]
     Active Substance: LEVOTHYROXINE

REACTIONS (1)
  - Death [None]

NARRATIVE: CASE EVENT DATE: 20190411
